FAERS Safety Report 7526479-4 (Version None)
Quarter: 2011Q2

REPORT INFORMATION
  Report Type: 
  Country: None (occurrence: None)
  Receive Date: 20110527
  Receipt Date: 20110516
  Transmission Date: 20111010
  Serious: Yes (Other)
  Sender: FDA-Public Use
  Company Number: 2011P1005436

PATIENT
  Age: 36 Year
  Sex: Male
  Weight: 72.5755 kg

DRUGS (11)
  1. DILAUDID [Concomitant]
  2. LORAZEPAM [Concomitant]
  3. FENTANYL-75 [Suspect]
     Indication: ROAD TRAFFIC ACCIDENT
     Dosage: 2 PATCHES;Q48HR;TDER
     Route: 062
     Dates: start: 20100226, end: 20110303
  4. FENTANYL-75 [Suspect]
     Indication: PAIN
     Dosage: 2 PATCHES;Q48HR;TDER
     Route: 062
     Dates: start: 20100226, end: 20110303
  5. FENTANYL-75 [Suspect]
     Indication: SURGERY
     Dosage: 2 PATCHES;Q48HR;TDER
     Route: 062
     Dates: start: 20100226, end: 20110303
  6. TRAZODONE HCL [Concomitant]
  7. VALIUM [Concomitant]
  8. AMITIZA [Concomitant]
  9. HYDROXYZINE [Concomitant]
  10. DIABETIC FORMULA EXPECTORANT [Concomitant]
  11. MORPHINE [Concomitant]

REACTIONS (16)
  - PAIN [None]
  - PRODUCT ADHESION ISSUE [None]
  - DIARRHOEA [None]
  - HALLUCINATION [None]
  - GAIT DISTURBANCE [None]
  - ABDOMINAL PAIN [None]
  - FLAT AFFECT [None]
  - VOMITING [None]
  - ASTHENIA [None]
  - DYSARTHRIA [None]
  - CONFUSIONAL STATE [None]
  - DEHYDRATION [None]
  - DEVICE LEAKAGE [None]
  - DRUG WITHDRAWAL SYNDROME [None]
  - AMNESIA [None]
  - ACCIDENTAL EXPOSURE [None]
